FAERS Safety Report 15744082 (Version 2)
Quarter: 2019Q1

REPORT INFORMATION
  Report Type: Spontaneous
  Country: MY (occurrence: MY)
  Receive Date: 20181220
  Receipt Date: 20190111
  Transmission Date: 20190417
  Serious: Yes (Other)
  Sender: FDA-Public Use
  Company Number: MY-REGENERON PHARMACEUTICALS, INC.-2018-49048

PATIENT

DRUGS (20)
  1. EYLEA [Suspect]
     Active Substance: AFLIBERCEPT
     Dosage: UNK
     Dates: start: 201608, end: 201608
  2. EYLEA [Suspect]
     Active Substance: AFLIBERCEPT
     Dosage: TOTAL OF 13 EYLEA INJECTIONS RECEIVED
     Dates: start: 201807, end: 201807
  3. RANIBIZUMAB. [Concomitant]
     Active Substance: RANIBIZUMAB
     Dosage: UNK
     Dates: start: 201706, end: 201706
  4. RANIBIZUMAB. [Concomitant]
     Active Substance: RANIBIZUMAB
     Dosage: UNK
     Dates: start: 201803, end: 201803
  5. EYLEA [Suspect]
     Active Substance: AFLIBERCEPT
     Indication: PRODUCT USED FOR UNKNOWN INDICATION
     Dosage: UNK
     Dates: start: 201606, end: 201606
  6. EYLEA [Suspect]
     Active Substance: AFLIBERCEPT
     Dosage: UNK
     Dates: start: 201702, end: 201702
  7. EYLEA [Suspect]
     Active Substance: AFLIBERCEPT
     Dosage: UNK
     Dates: start: 201703, end: 201703
  8. EYLEA [Suspect]
     Active Substance: AFLIBERCEPT
     Dosage: UNK
     Dates: start: 201801, end: 201801
  9. EYLEA [Suspect]
     Active Substance: AFLIBERCEPT
     Dosage: UNK
     Dates: start: 201610, end: 201610
  10. EYLEA [Suspect]
     Active Substance: AFLIBERCEPT
     Dosage: UNK
     Dates: start: 201611, end: 201611
  11. EYLEA [Suspect]
     Active Substance: AFLIBERCEPT
     Dosage: UNK
     Dates: start: 201701, end: 201701
  12. RANIBIZUMAB. [Concomitant]
     Active Substance: RANIBIZUMAB
     Dosage: UNK
     Dates: start: 201711, end: 201711
  13. EYLEA [Suspect]
     Active Substance: AFLIBERCEPT
     Dosage: UNK
     Dates: start: 201609, end: 201609
  14. EYLEA [Suspect]
     Active Substance: AFLIBERCEPT
     Dosage: UNK
     Dates: start: 201607, end: 201607
  15. RANIBIZUMAB. [Concomitant]
     Active Substance: RANIBIZUMAB
     Indication: PRODUCT USED FOR UNKNOWN INDICATION
     Dosage: UNK
     Dates: start: 201612, end: 201612
  16. RANIBIZUMAB. [Concomitant]
     Active Substance: RANIBIZUMAB
     Dosage: UNK
     Dates: start: 201804, end: 201804
  17. EYLEA [Suspect]
     Active Substance: AFLIBERCEPT
     Dosage: UNK
     Dates: start: 201708, end: 201708
  18. EYLEA [Suspect]
     Active Substance: AFLIBERCEPT
     Dosage: UNK
     Dates: start: 201806, end: 201806
  19. RANIBIZUMAB. [Concomitant]
     Active Substance: RANIBIZUMAB
     Dosage: UNK
     Dates: start: 201710, end: 201710
  20. RANIBIZUMAB. [Concomitant]
     Active Substance: RANIBIZUMAB
     Dosage: TOTAL OF 13 RANIBIZUMAB INJECTIONS RECEIVED
     Dates: start: 201805, end: 201805

REACTIONS (3)
  - Polypoidal choroidal vasculopathy [Unknown]
  - Off label use [Unknown]
  - Eye inflammation [Unknown]

NARRATIVE: CASE EVENT DATE: 201701
